FAERS Safety Report 8904781 (Version 4)
Quarter: 2013Q2

REPORT INFORMATION
  Report Type: Report from Study
  Country: US (occurrence: US)
  Receive Date: 20121113
  Receipt Date: 20130613
  Transmission Date: 20140414
  Serious: Yes (Hospitalization)
  Sender: FDA-Public Use
  Company Number: US-BIOGENIDEC-2012BI051365

PATIENT
  Age: 47 Year
  Sex: Male
  Weight: 48 kg

DRUGS (4)
  1. TYSABRI [Suspect]
     Indication: CROHN^S DISEASE
     Route: 042
     Dates: start: 20120806, end: 20121218
  2. HYDROCORTISONE [Concomitant]
     Dates: start: 20120618
  3. IMMODIUM AD [Concomitant]
     Indication: DIARRHOEA
     Route: 048
     Dates: start: 20120618
  4. ZOFRAN [Concomitant]
     Route: 048
     Dates: start: 20120618

REACTIONS (1)
  - Klebsiella bacteraemia [Recovered/Resolved]
